FAERS Safety Report 7225427-4 (Version None)
Quarter: 2011Q1

REPORT INFORMATION
  Report Type: 
  Country: None (occurrence: None)
  Receive Date: 20110113
  Receipt Date: 20110106
  Transmission Date: 20110831
  Serious: Yes (Other)
  Sender: FDA-Public Use
  Company Number: US-AMGEN-USASP2011000924

PATIENT

DRUGS (1)
  1. ENBREL [Suspect]
     Indication: PSORIATIC ARTHROPATHY
     Dosage: 50 MG, QWK
     Dates: start: 20060506, end: 20090101

REACTIONS (8)
  - CARDIOMEGALY [None]
  - PSORIATIC ARTHROPATHY [None]
  - BRONCHITIS [None]
  - PNEUMONIA [None]
  - HYPOTENSION [None]
  - HYPERTENSION [None]
  - COUGH [None]
  - DIVERTICULITIS [None]
